FAERS Safety Report 19144690 (Version 1)
Quarter: 2021Q2

REPORT INFORMATION
  Report Type: Spontaneous
  Country: CN (occurrence: CN)
  Receive Date: 20210416
  Receipt Date: 20210416
  Transmission Date: 20210717
  Serious: Yes (Other)
  Sender: FDA-Public Use
  Company Number: CN-ROCHE-2808668

PATIENT
  Age: 35 Year
  Sex: Male

DRUGS (3)
  1. MABTHERA [Suspect]
     Active Substance: RITUXIMAB
     Dosage: FOR 4 TIMES
     Route: 065
     Dates: start: 2019
  2. MABTHERA [Suspect]
     Active Substance: RITUXIMAB
     Dosage: FOR 4 TIMES
     Route: 065
     Dates: start: 2014
  3. MABTHERA [Suspect]
     Active Substance: RITUXIMAB
     Indication: ANTI-NEUTROPHIL CYTOPLASMIC ANTIBODY POSITIVE VASCULITIS
     Dosage: FOR ONE TIME
     Route: 065
     Dates: start: 2013

REACTIONS (3)
  - Anti-neutrophil cytoplasmic antibody positive vasculitis [Unknown]
  - Infection [Unknown]
  - Off label use [Unknown]
